FAERS Safety Report 8336152-0 (Version None)
Quarter: 2012Q1

REPORT INFORMATION
  Report Type: 
  Country: None (occurrence: None)
  Receive Date: 20120329
  Receipt Date: 20090527
  Transmission Date: 20120608
  Serious: Yes (Hospitalization, Other)
  Sender: FDA-Public Use
  Company Number: PHEH2009US05350

PATIENT
  Sex: Male

DRUGS (2)
  1. EXELON [Suspect]
     Dosage: TRANSDERMAL
     Route: 062
  2. NAMENDA [Concomitant]

REACTIONS (1)
  - PNEUMONIA [None]
